FAERS Safety Report 7225510-3 (Version None)
Quarter: 2011Q1

REPORT INFORMATION
  Report Type: 
  Country: None (occurrence: None)
  Receive Date: 20110113
  Receipt Date: 20110106
  Transmission Date: 20110831
  Serious: Yes (Death)
  Sender: FDA-Public Use
  Company Number: US-MERCK-1101USA00218

PATIENT
  Age: 70 Year
  Sex: Female

DRUGS (18)
  1. FLUOXETINE [Suspect]
     Route: 048
  2. CLONAZEPAM [Suspect]
     Route: 048
  3. CHLORDIAZEPOXIDE [Suspect]
     Route: 048
  4. MEVACOR [Suspect]
     Route: 048
  5. FOLIC ACID [Suspect]
     Route: 048
  6. ZESTRIL [Suspect]
     Route: 048
  7. DESIPRAMINE HYDROCHLORIDE [Suspect]
     Route: 048
  8. TORSEMIDE [Suspect]
     Route: 048
  9. VITAMINS (UNSPECIFIED) [Suspect]
     Route: 048
  10. CALCIUM (UNSPECIFIED) [Suspect]
     Route: 048
  11. ACETAMINOPHEN [Suspect]
     Route: 048
  12. METHADONE HYDROCHLORIDE [Suspect]
     Route: 048
  13. HYDROMORPHONE [Suspect]
     Route: 048
  14. CYCLOBENZAPRINE HYDROCHLORIDE [Suspect]
     Route: 048
  15. PREGABALIN [Suspect]
     Route: 048
  16. ACETAMINOPHEN AND OXYCODONE HYDROCHLORIDE [Suspect]
     Route: 048
  17. MELOXICAM [Suspect]
     Route: 048
  18. DULOXETINE HYDROCHLORIDE [Suspect]
     Route: 048

REACTIONS (3)
  - TOXICITY TO VARIOUS AGENTS [None]
  - OVERDOSE [None]
  - COMPLETED SUICIDE [None]
